FAERS Safety Report 7974449-4 (Version None)
Quarter: 2011Q4

REPORT INFORMATION
  Report Type: 
  Country: None (occurrence: None)
  Receive Date: 20111213
  Receipt Date: 20111130
  Transmission Date: 20120403
  Serious: Yes (Hospitalization)
  Sender: FDA-Public Use
  Company Number: US-MYLANLABS-2011S1024946

PATIENT
  Age: 49 Year
  Sex: Male

DRUGS (3)
  1. AMLODIPINE [Suspect]
     Indication: INTENTIONAL OVERDOSE
     Route: 048
  2. CLONAZEPAM [Suspect]
     Indication: INTENTIONAL OVERDOSE
     Route: 048
  3. TRAMADOL HCL [Suspect]
     Indication: INTENTIONAL OVERDOSE
     Route: 048

REACTIONS (8)
  - HYPOTENSION [None]
  - HYPOXIA [None]
  - RESPIRATORY FAILURE [None]
  - RENAL FAILURE ACUTE [None]
  - PULMONARY OEDEMA [None]
  - INTENTIONAL OVERDOSE [None]
  - BRADYCARDIA [None]
  - NODAL RHYTHM [None]
